FAERS Safety Report 7536493-0 (Version None)
Quarter: 2011Q2

REPORT INFORMATION
  Report Type: 
  Country: None (occurrence: None)
  Receive Date: 20110602
  Receipt Date: 20110523
  Transmission Date: 20111010
  Serious: Yes (Hospitalization)
  Sender: FDA-Public Use
  Company Number: DSA_46732_2011

PATIENT
  Sex: Male
  Weight: 64.8 kg

DRUGS (1)
  1. TETRABENAZINE (TETRABENAZINE - (BAF-105))  50 MG [Suspect]
     Dosage: (50 MG QD ORAL)
     Route: 048
     Dates: start: 20110510, end: 20110510

REACTIONS (16)
  - MALAISE [None]
  - CHILLS [None]
  - NEUROLOGICAL SYMPTOM [None]
  - AGITATION [None]
  - BLOOD CREATINE PHOSPHOKINASE INCREASED [None]
  - BLOOD PRESSURE DIASTOLIC DECREASED [None]
  - DYSPNOEA [None]
  - TREMOR [None]
  - CONVULSION [None]
  - AKATHISIA [None]
  - HEART RATE DECREASED [None]
  - SENSATION OF HEAVINESS [None]
  - URINE OUTPUT DECREASED [None]
  - DEHYDRATION [None]
  - MUSCULOSKELETAL STIFFNESS [None]
  - DYSKINESIA [None]
